FAERS Safety Report 20683171 (Version 1)
Quarter: 2022Q2

REPORT INFORMATION
  Report Type: Spontaneous
  Country: US (occurrence: US)
  Receive Date: 20220407
  Receipt Date: 20220407
  Transmission Date: 20220721
  Serious: Yes (Other)
  Sender: FDA-Public Use
  Company Number: US-SA-SAC20220406000677

PATIENT
  Sex: Male

DRUGS (10)
  1. DUPIXENT [Suspect]
     Active Substance: DUPILUMAB
     Indication: Dermatitis atopic
     Dosage: 300 MG, QOW
     Route: 058
     Dates: start: 20170811
  2. DUPIXENT [Suspect]
     Active Substance: DUPILUMAB
     Indication: Dermatitis allergic
  3. BIOTIN [Concomitant]
     Active Substance: BIOTIN
  4. CALCIUM [Concomitant]
     Active Substance: CALCIUM
  5. VITAMIN D3 [Concomitant]
     Active Substance: CHOLECALCIFEROL
  6. CUTIVATE [CLOBETASOL PROPIONATE] [Concomitant]
  7. FLUOCINONIDE [Concomitant]
     Active Substance: FLUOCINONIDE
  8. SOLODYN [Concomitant]
     Active Substance: MINOCYCLINE HYDROCHLORIDE
  9. ZINC SULFATE [Concomitant]
     Active Substance: ZINC SULFATE
  10. ZYRTEC [Concomitant]
     Active Substance: CETIRIZINE HYDROCHLORIDE

REACTIONS (6)
  - Spontaneous haemorrhage [Recovered/Resolved]
  - COVID-19 [Unknown]
  - Alopecia [Unknown]
  - Pyrexia [Recovered/Resolved]
  - Platelet count decreased [Recovered/Resolved]
  - Product use in unapproved indication [Unknown]
